FAERS Safety Report 24075641 (Version 1)
Quarter: 2024Q3

REPORT INFORMATION
  Report Type: Spontaneous
  Country: US (occurrence: None)
  Receive Date: 20240710
  Receipt Date: 20240710
  Transmission Date: 20241016
  Serious: Yes (Other)
  Sender: Public
  Company Number: None

PATIENT
  Age: 75 Year
  Sex: Male
  Weight: 61.6 kg

DRUGS (1)
  1. CRESEMBA [Suspect]
     Active Substance: ISAVUCONAZONIUM SULFATE

REACTIONS (4)
  - Accidental exposure to product packaging [None]
  - Sensation of foreign body [None]
  - Dysphagia [None]
  - Oropharyngeal pain [None]

NARRATIVE: CASE EVENT DATE: 20240709
